FAERS Safety Report 8920237 (Version 2)
Quarter: 2012Q4

REPORT INFORMATION
  Report Type: 
  Country: US (occurrence: US)
  Receive Date: 20121121
  Receipt Date: 20121204
  Transmission Date: 20130627
  Serious: Yes (Death, Other)
  Sender: FDA-Public Use
  Company Number: US-VERTEX PHARMACEUTICAL INC.-2012-024991

PATIENT

DRUGS (4)
  1. INCIVEK [Suspect]
     Indication: HEPATITIS C
  2. PEGINTERFERON [Suspect]
  3. RIBAVIRIN [Suspect]
  4. CYCLOSPORIN A [Concomitant]

REACTIONS (18)
  - Sepsis [Fatal]
  - Transplant rejection [None]
  - Angina unstable [None]
  - Anaemia [None]
  - Sinusitis [None]
  - Cellulitis [None]
  - Pneumonia [None]
  - Ascites [None]
  - Herpes zoster [None]
  - Hepatic encephalopathy [None]
  - Renal failure [None]
  - Urinary tract infection [None]
  - Leukopenia [None]
  - Off label use [None]
  - Rash [None]
  - Thrombocytopenia [None]
  - Diarrhoea [None]
  - Dysgeusia [None]
